FAERS Safety Report 6124285-9 (Version None)
Quarter: 2009Q1

REPORT INFORMATION
  Report Type: 
  Country: None (occurrence: None)
  Receive Date: 20090317
  Receipt Date: 20090218
  Transmission Date: 20090719
  Serious: Yes (Life-Threatening)
  Sender: FDA-Public Use
  Company Number: 2009AP000599

PATIENT
  Age: 72 Year
  Sex: Female

DRUGS (6)
  1. ALENDRONATE SODIUM [Suspect]
     Indication: BONE DENSITY DECREASED
     Dosage: 35 MG; QIW; PO
     Route: 048
     Dates: start: 20090215, end: 20090215
  2. LEVOTHYROXINE SODIUM [Concomitant]
  3. PRAVASTATIN [Concomitant]
  4. LISINOPRIL [Concomitant]
  5. METOPROLOL TARTRATE [Concomitant]
  6. ALENDRONATE SODIUM [Concomitant]

REACTIONS (5)
  - ANGIOEDEMA [None]
  - CHOKING SENSATION [None]
  - DIZZINESS [None]
  - HYPERSENSITIVITY [None]
  - PALPITATIONS [None]
